FAERS Safety Report 6257551-7 (Version None)
Quarter: 2009Q3

REPORT INFORMATION
  Report Type: 
  Country: None (occurrence: None)
  Receive Date: 20090706
  Receipt Date: 20090625
  Transmission Date: 20100115
  Serious: Yes (Other)
  Sender: FDA-Public Use
  Company Number: PHHY2009FR25868

PATIENT
  Age: 17 Year
  Sex: Female

DRUGS (3)
  1. SIMULECT [Suspect]
     Indication: RENAL TRANSPLANT
     Dosage: 150 MG, UNK
  2. NEORAL [Suspect]
     Indication: RENAL TRANSPLANT
     Dosage: 150 MG, UNK
  3. CELLCEPT [Suspect]
     Indication: RENAL TRANSPLANT
     Dosage: 150 MG, UNK

REACTIONS (1)
  - ANAPHYLACTIC SHOCK [None]
